FAERS Safety Report 22022226 (Version 1)
Quarter: 2023Q1

REPORT INFORMATION
  Report Type: Spontaneous
  Country: SE (occurrence: SE)
  Receive Date: 20230222
  Receipt Date: 20230222
  Transmission Date: 20230417
  Serious: Yes (Life-Threatening, Other)
  Sender: FDA-Public Use
  Company Number: None

PATIENT
  Age: 70 Year
  Sex: Female

DRUGS (2)
  1. XELJANZ [Suspect]
     Active Substance: TOFACITINIB CITRATE
     Indication: Rheumatoid arthritis
     Dosage: 10 MG
     Dates: start: 20170509, end: 20230206
  2. METOTREXAT [METHOTREXATE SODIUM] [Concomitant]
     Dosage: 7.5 MEQ
     Dates: start: 20181101

REACTIONS (1)
  - Anal cancer [Recovering/Resolving]

NARRATIVE: CASE EVENT DATE: 20230206
